FAERS Safety Report 4297677-0 (Version None)
Quarter: 2004Q1

REPORT INFORMATION
  Report Type: 
  Country: None (occurrence: None)
  Receive Date: 20040213
  Receipt Date: 20040202
  Transmission Date: 20041129
  Serious: No
  Sender: FDA-Public Use
  Company Number: 04P-167-0249328-00

PATIENT
  Age: 75 Year
  Sex: Female
  Weight: 77 kg

DRUGS (5)
  1. ERYTHROMYCIN (ERYTHROMYCIN BASE FILMTABS) [Suspect]
     Indication: LOWER RESPIRATORY TRACT INFECTION
     Dosage: 4 IN 1 D, ORAL
     Route: 048
     Dates: start: 20040102, end: 20040109
  2. PHOLCODINE [Concomitant]
  3. PROPRANOLOL [Concomitant]
  4. ASPIRIN [Concomitant]
  5. TRIMETHOPRIM [Concomitant]

REACTIONS (1)
  - DIARRHOEA HAEMORRHAGIC [None]
